FAERS Safety Report 21993400 (Version 1)
Quarter: 2023Q1

REPORT INFORMATION
  Report Type: Spontaneous
  Country: US (occurrence: US)
  Receive Date: 20230215
  Receipt Date: 20230215
  Transmission Date: 20230418
  Serious: Yes (Other)
  Sender: FDA-Public Use
  Company Number: US-CIPLA LTD.-2023US00876

PATIENT

DRUGS (3)
  1. BUDESONIDE [Suspect]
     Active Substance: BUDESONIDE
     Indication: Asthma
     Dosage: UNK, SALINE SINUS RINSES
     Route: 065
  2. BUDESONIDE [Suspect]
     Active Substance: BUDESONIDE
     Indication: Nasal polyps
  3. BUDESONIDE [Suspect]
     Active Substance: BUDESONIDE
     Indication: Anosmia

REACTIONS (2)
  - Drug ineffective [Unknown]
  - Impaired quality of life [Unknown]
